FAERS Safety Report 21036343 (Version 1)
Quarter: 2022Q3

REPORT INFORMATION
  Report Type: Spontaneous
  Country: US (occurrence: US)
  Receive Date: 20220702
  Receipt Date: 20220702
  Transmission Date: 20221026
  Serious: No
  Sender: FDA-Public Use
  Company Number: US-JNJFOC-20220656672

PATIENT
  Sex: Female

DRUGS (1)
  1. XARELTO [Suspect]
     Active Substance: RIVAROXABAN
     Indication: Product used for unknown indication
     Route: 048
     Dates: start: 20220301

REACTIONS (6)
  - Fear [Unknown]
  - Discomfort [Unknown]
  - Feeling abnormal [Unknown]
  - Swelling [Unknown]
  - Frequent bowel movements [Unknown]
  - Pain [Unknown]
